FAERS Safety Report 23194136 (Version 1)
Quarter: 2023Q4

REPORT INFORMATION
  Report Type: Spontaneous
  Country: US (occurrence: US)
  Receive Date: 20231117
  Receipt Date: 20231117
  Transmission Date: 20240110
  Serious: Yes (Other)
  Sender: FDA-Public Use
  Company Number: US-TOLMAR, INC.-23US044716

PATIENT
  Age: 86 Year
  Sex: Male

DRUGS (3)
  1. ELIGARD [Suspect]
     Active Substance: LEUPROLIDE ACETATE
     Indication: Prostate cancer
     Dosage: UNK
  2. ELIGARD [Suspect]
     Active Substance: LEUPROLIDE ACETATE
     Indication: Prostate cancer
     Dosage: UNK
  3. FLUTAMIDE [Concomitant]
     Active Substance: FLUTAMIDE
     Indication: Prostate cancer

REACTIONS (2)
  - Prolactin-producing pituitary tumour [Not Recovered/Not Resolved]
  - Osteoporosis [Not Recovered/Not Resolved]
